FAERS Safety Report 17438063 (Version 1)
Quarter: 2020Q1

REPORT INFORMATION
  Report Type: Spontaneous
  Country: JP (occurrence: JP)
  Receive Date: 20200220
  Receipt Date: 20200220
  Transmission Date: 20200409
  Serious: Yes (Other)
  Sender: FDA-Public Use
  Company Number: JP-SUN PHARMACEUTICAL INDUSTRIES LTD-2020RR-237365

PATIENT
  Age: 60 Year
  Sex: Male
  Weight: 67 kg

DRUGS (6)
  1. GEMCITABINE. [Suspect]
     Active Substance: GEMCITABINE
     Indication: METASTASES TO ADRENALS
  2. GEMCITABINE. [Suspect]
     Active Substance: GEMCITABINE
     Indication: LUNG ADENOCARCINOMA STAGE IV
     Dosage: UNK
     Route: 065
  3. GEMCITABINE. [Suspect]
     Active Substance: GEMCITABINE
     Indication: METASTASES TO MUSCLE
  4. NAB-PACLITAXEL [Suspect]
     Active Substance: PACLITAXEL
     Indication: METASTASES TO MUSCLE
  5. NAB-PACLITAXEL [Suspect]
     Active Substance: PACLITAXEL
     Indication: METASTASES TO ADRENALS
  6. NAB-PACLITAXEL [Suspect]
     Active Substance: PACLITAXEL
     Indication: LUNG ADENOCARCINOMA STAGE IV
     Dosage: UNK
     Route: 065

REACTIONS (2)
  - Vomiting [Unknown]
  - Disease progression [Unknown]
